FAERS Safety Report 11311345 (Version 1)
Quarter: 2015Q3

REPORT INFORMATION
  Report Type: Spontaneous
  Country: US (occurrence: None)
  Receive Date: 20150724
  Receipt Date: 20150724
  Transmission Date: 20151125
  Serious: Yes (Other)
  Sender: FDA-Public Use
  Company Number: None

PATIENT
  Age: 46 Year
  Sex: Female
  Weight: 113.85 kg

DRUGS (1)
  1. HUMIRA [Suspect]
     Active Substance: ADALIMUMAB
     Dosage: 40, INJECTABLE, Q OTHER WEEK
     Route: 058
     Dates: start: 20150614, end: 20150630

REACTIONS (2)
  - Systemic lupus erythematosus rash [None]
  - Medical device site discomfort [None]

NARRATIVE: CASE EVENT DATE: 20150630
